FAERS Safety Report 8623939-X (Version None)
Quarter: 2012Q3

REPORT INFORMATION
  Report Type: 
  Country: None (occurrence: None)
  Receive Date: 20120827
  Receipt Date: 20120824
  Transmission Date: 20120928
  Serious: Yes (Death)
  Sender: FDA-Public Use
  Company Number: PHHY2012SK073478

PATIENT
  Sex: Male

DRUGS (2)
  1. INDACATEROL [Suspect]
  2. FLIXOTIDE DISKUS [Concomitant]
     Dosage: 500 MG, BID

REACTIONS (1)
  - DEATH [None]
